FAERS Safety Report 20472267 (Version 2)
Quarter: 2024Q1

REPORT INFORMATION
  Report Type: Report from Study
  Country: RO (occurrence: RO)
  Receive Date: 20220214
  Receipt Date: 20240217
  Transmission Date: 20240410
  Serious: Yes (Disabling, Other)
  Sender: FDA-Public Use
  Company Number: RO-ABBVIE-22K-135-4275819-00

PATIENT
  Age: 70 Year
  Sex: Female

DRUGS (2)
  1. CARBIDOPA\LEVODOPA [Suspect]
     Active Substance: CARBIDOPA\LEVODOPA
     Indication: Parkinson^s disease
     Dosage: DM=10.00 DC=4.90 ED=2.20 NRED=4; DMN=0.00 DCN=2.20 EDN=2.20 NREDN=0
     Route: 050
     Dates: start: 20130118
  2. CARBIDOPA\LEVODOPA [Suspect]
     Active Substance: CARBIDOPA\LEVODOPA

REACTIONS (8)
  - Mobility decreased [Not Recovered/Not Resolved]
  - Respiratory failure [Recovering/Resolving]
  - Dystonia [Not Recovered/Not Resolved]
  - Pain in extremity [Recovering/Resolving]
  - General physical health deterioration [Unknown]
  - Dystonia [Recovered/Resolved]
  - Hallucination [Not Recovered/Not Resolved]
  - On and off phenomenon [Unknown]

NARRATIVE: CASE EVENT DATE: 20220210
